FAERS Safety Report 7408113-7 (Version None)
Quarter: 2011Q2

REPORT INFORMATION
  Report Type: 
  Country: None (occurrence: None)
  Receive Date: 20110412
  Receipt Date: 20110330
  Transmission Date: 20111010
  Serious: Yes (Hospitalization)
  Sender: FDA-Public Use
  Company Number: JP-JNJFOC-20110201228

PATIENT
  Sex: Female
  Weight: 38 kg

DRUGS (8)
  1. RISPERDAL [Suspect]
     Indication: PRODUCT USED FOR UNKNOWN INDICATION
     Route: 048
  2. MEIACT [Concomitant]
     Indication: CHILLS
     Route: 048
  3. MUCODYNE [Concomitant]
     Indication: MALAISE
     Route: 048
  4. MUCODYNE [Concomitant]
     Indication: CHILLS
     Route: 048
  5. TOWK [Concomitant]
     Indication: MALAISE
     Route: 048
  6. MEIACT [Concomitant]
     Indication: MALAISE
     Route: 048
  7. TOWK [Concomitant]
     Indication: CHILLS
     Route: 048
  8. CARBAMAZEPINE [Suspect]
     Indication: PRODUCT USED FOR UNKNOWN INDICATION
     Route: 065

REACTIONS (18)
  - DECREASED ACTIVITY [None]
  - FEELING COLD [None]
  - NASOPHARYNGITIS [None]
  - SOMNOLENCE [None]
  - SEDATION [None]
  - DRUG PRESCRIBING ERROR [None]
  - OVERDOSE [None]
  - DECREASED APPETITE [None]
  - FLUID INTAKE REDUCED [None]
  - DIZZINESS [None]
  - SPEECH DISORDER [None]
  - ASTHENIA [None]
  - FEELING ABNORMAL [None]
  - DYSKINESIA [None]
  - TREMOR [None]
  - DRUG DISPENSING ERROR [None]
  - ALTERED STATE OF CONSCIOUSNESS [None]
  - DEHYDRATION [None]
